FAERS Safety Report 6689261-6 (Version None)
Quarter: 2010Q2

REPORT INFORMATION
  Report Type: 
  Country: None (occurrence: None)
  Receive Date: 20100416
  Receipt Date: 20100405
  Transmission Date: 20101027
  Serious: Yes (Other)
  Sender: FDA-Public Use
  Company Number: 1-21562668

PATIENT
  Age: 48 Year
  Sex: Male

DRUGS (4)
  1. VANOS [Suspect]
     Indication: DERMATITIS
     Dosage: TWICE DAILY AS NEEDED, TOPICAL
     Route: 061
     Dates: start: 20080301, end: 20100119
  2. GLUCOPHAGE [Concomitant]
  3. FISH OIL [Concomitant]
  4. COREG [Concomitant]

REACTIONS (4)
  - CATARACT SUBCAPSULAR [None]
  - DERMATITIS [None]
  - TREATMENT NONCOMPLIANCE [None]
  - VISION BLURRED [None]
